FAERS Safety Report 5085370-6 (Version None)
Quarter: 2006Q3

REPORT INFORMATION
  Report Type: 
  Country: None (occurrence: None)
  Receive Date: 20060731
  Receipt Date: 20060413
  Transmission Date: 20061208
  Serious: Yes (Life-Threatening, Hospitalization)
  Sender: FDA-Public Use
  Company Number: 200611104BWH

PATIENT
  Age: 45 Year
  Sex: Female

DRUGS (1)
  1. AVELOX [Suspect]
     Indication: SINUSITIS
     Dosage: 400 MG, ONCE, ORAL
     Route: 048
     Dates: start: 20060220

REACTIONS (9)
  - ANAPHYLACTIC REACTION [None]
  - CHEST PAIN [None]
  - EAR DISCOMFORT [None]
  - GENERALISED ERYTHEMA [None]
  - HYPOTENSION [None]
  - NAUSEA [None]
  - RASH [None]
  - THROAT TIGHTNESS [None]
  - WHEEZING [None]
